FAERS Safety Report 8758140 (Version 2)
Quarter: 2012Q4

REPORT INFORMATION
  Report Type: Report from Study
  Country: JP (occurrence: JP)
  Receive Date: 20120828
  Receipt Date: 20120921
  Transmission Date: 20130627
  Serious: Yes (Death)
  Sender: FDA-Public Use
  Company Number: JP-009507513-1208JPN010130

PATIENT

DRUGS (3)
  1. JANUVIA TABLETS 50MG [Suspect]
     Indication: TYPE 2 DIABETES MELLITUS
     Dosage: 50 mg, qd
     Dates: start: 20110908
  2. PREDONINE [Concomitant]
     Indication: LUNG DISORDER
     Dosage: 50 mg, qd
     Route: 048
     Dates: start: 20110818, end: 20111028
  3. AMARYL [Concomitant]
     Indication: DIABETES MELLITUS
     Dosage: 1 mg, qd
     Route: 048
     Dates: start: 20111006, end: 20111009

REACTIONS (1)
  - Interstitial lung disease [Fatal]
